FAERS Safety Report 4954498-0 (Version None)
Quarter: 2006Q1

REPORT INFORMATION
  Report Type: 
  Country: None (occurrence: None)
  Receive Date: 20060322
  Receipt Date: 20060310
  Transmission Date: 20060701
  Serious: Yes (Other)
  Sender: FDA-Public Use
  Company Number: 2006025076

PATIENT
  Age: 66 Year
  Sex: Female

DRUGS (2)
  1. LIPITOR [Suspect]
     Indication: ILL-DEFINED DISORDER
     Dosage: ORAL
  2. AMLODIPINE BESILATE (AMLODIPINE) [Concomitant]

REACTIONS (2)
  - BRAIN NEOPLASM [None]
  - DROOLING [None]
